FAERS Safety Report 6655909-5 (Version None)
Quarter: 2010Q1

REPORT INFORMATION
  Report Type: 
  Country: None (occurrence: None)
  Receive Date: 20100329
  Receipt Date: 20100316
  Transmission Date: 20100710
  Serious: Yes (Hospitalization, Other)
  Sender: FDA-Public Use
  Company Number: PHHY2010US16655

PATIENT
  Sex: Male

DRUGS (8)
  1. CLOZAPINE [Suspect]
     Indication: SCHIZOPHRENIA
     Dosage: 12.5 MG
     Route: 048
     Dates: start: 20080401
  2. CLOZAPINE [Suspect]
     Dosage: 25 MG
  3. CLOZAPINE [Suspect]
     Dosage: 50 MG
  4. CLOZAPINE [Suspect]
     Dosage: 100 MG
     Route: 048
  5. CLOZAPINE [Suspect]
     Dosage: UNK
     Dates: start: 20100122
  6. CARBAMAZEPINE [Suspect]
     Indication: AFFECTIVE DISORDER
     Dosage: BID
     Route: 048
     Dates: start: 20060614, end: 20090201
  7. CARBAMAZEPINE [Suspect]
     Indication: PNEUMONIA
  8. AZITHROMYCIN [Suspect]
     Indication: PNEUMONIA

REACTIONS (11)
  - AGGRESSION [None]
  - GRANULOCYTOPENIA [None]
  - HYPERHIDROSIS [None]
  - MALAISE [None]
  - NEUTROPENIA [None]
  - NEUTROPHIL COUNT DECREASED [None]
  - PNEUMONIA [None]
  - PSYCHOTIC DISORDER [None]
  - TACHYCARDIA [None]
  - THROMBOCYTOPENIA [None]
  - WHITE BLOOD CELL COUNT DECREASED [None]
